FAERS Safety Report 11571692 (Version 1)
Quarter: 2015Q3

REPORT INFORMATION
  Report Type: Spontaneous
  Country: US (occurrence: US)
  Receive Date: 20150916
  Receipt Date: 20150916
  Transmission Date: 20151125
  Serious: No
  Sender: FDA-Public Use
  Company Number: US-ELI_LILLY_AND_COMPANY-US200910000191

PATIENT
  Sex: Female

DRUGS (2)
  1. THYROID THERAPY [Concomitant]
     Active Substance: UNSPECIFIED INGREDIENT
     Dates: start: 2003
  2. FORTEO [Suspect]
     Active Substance: TERIPARATIDE
     Indication: OSTEOPOROSIS
     Dates: start: 20090701, end: 200909

REACTIONS (10)
  - Hypotonia [Recovering/Resolving]
  - Pain [Recovering/Resolving]
  - Bone pain [Unknown]
  - Nausea [Recovered/Resolved]
  - Vitamin B12 decreased [Unknown]
  - Sleep disorder [Recovered/Resolved]
  - Tremor [Not Recovered/Not Resolved]
  - Hypothyroidism [Unknown]
  - Fatigue [Recovering/Resolving]
  - Muscle spasms [Not Recovered/Not Resolved]

NARRATIVE: CASE EVENT DATE: 2009
